FAERS Safety Report 5447437-X (Version None)
Quarter: 2007Q3

REPORT INFORMATION
  Report Type: 
  Country: None (occurrence: None)
  Receive Date: 20070905
  Receipt Date: 20070820
  Transmission Date: 20080115
  Serious: Yes (Hospitalization)
  Sender: FDA-Public Use
  Company Number: 2007EU001833

PATIENT
  Age: 5 Year
  Sex: Female

DRUGS (3)
  1. PROGRAF [Suspect]
     Indication: RENAL TRANSPLANT
     Dosage: 1.4 MG, BID, ORAL
     Route: 048
     Dates: start: 20050201, end: 20070626
  2. CELLCEPT [Suspect]
     Indication: RENAL TRANSPLANT
     Dosage: /D, ORAL
     Route: 048
     Dates: start: 20041201, end: 20070412
  3. ASPIRIN [Concomitant]

REACTIONS (3)
  - APLASTIC ANAEMIA [None]
  - BONE MARROW FAILURE [None]
  - HAEMATOTOXICITY [None]
